FAERS Safety Report 7474294-2 (Version None)
Quarter: 2011Q2

REPORT INFORMATION
  Report Type: 
  Country: None (occurrence: None)
  Receive Date: 20110511
  Receipt Date: 20110426
  Transmission Date: 20111010
  Serious: Yes (Death, Other)
  Sender: FDA-Public Use
  Company Number: JP-AMGEN-JPNCT2011007131

PATIENT
  Age: 52 Year
  Sex: Female
  Weight: 53 kg

DRUGS (10)
  1. ALOXI [Concomitant]
     Dosage: UNK
     Route: 042
  2. MYSER [Concomitant]
     Dosage: UNK
     Route: 062
  3. KERATINAMIN KOWA [Concomitant]
     Dosage: UNK
     Route: 062
  4. DECADRON [Concomitant]
     Dosage: UNK
     Route: 042
  5. NEO-MERCAZOLE TAB [Concomitant]
     Dosage: UNK
     Route: 048
  6. CORTICOSTEROIDS [Concomitant]
     Indication: PROPHYLAXIS
     Dosage: UNK
     Route: 065
  7. VECTIBIX [Suspect]
     Indication: COLORECTAL CANCER METASTATIC
     Dosage: 6 MG/KG, Q2WK
     Route: 041
     Dates: start: 20101109, end: 20101222
  8. OLMESARTAN MEDOXOMIL [Concomitant]
     Dosage: UNK
     Route: 048
  9. IRINOTECAN HCL [Concomitant]
     Indication: COLORECTAL CANCER
     Route: 041
     Dates: start: 20101109, end: 20101222
  10. KINDAVATE [Concomitant]
     Dosage: UNK
     Route: 062

REACTIONS (3)
  - HYPERURICAEMIA [None]
  - COLORECTAL CANCER [None]
  - DERMATITIS ACNEIFORM [None]
